FAERS Safety Report 11325084 (Version 1)
Quarter: 2015Q3

REPORT INFORMATION
  Report Type: Spontaneous
  Country: US (occurrence: US)
  Receive Date: 20150730
  Receipt Date: 20150730
  Transmission Date: 20151125
  Serious: No
  Sender: FDA-Public Use
  Company Number: US-BAYER-2015-369213

PATIENT
  Age: 79 Year
  Sex: Male
  Weight: 88.45 kg

DRUGS (6)
  1. CITRACAL + D [CALCIUM CITRATE,COLECALCIFEROL] [Concomitant]
     Dosage: UNK
     Route: 048
     Dates: start: 1995, end: 2005
  2. METOPROLOL [Concomitant]
     Active Substance: METOPROLOL
     Dosage: 50 MG, UNK
     Route: 048
     Dates: start: 1995, end: 1996
  3. ACETYLSALICYLIC ACID({=100 MG) [Suspect]
     Active Substance: ASPIRIN
     Indication: PRODUCT USED FOR UNKNOWN INDICATION
     Dosage: 500 MG, UNK
     Route: 065
     Dates: end: 20150601
  4. XARELTO [Suspect]
     Active Substance: RIVAROXABAN
     Indication: CEREBROVASCULAR ACCIDENT PROPHYLAXIS
     Dosage: 20 MG, QD
     Route: 048
     Dates: start: 20150610
  5. XARELTO [Suspect]
     Active Substance: RIVAROXABAN
     Indication: ATRIAL FIBRILLATION
  6. LIPITOR [Concomitant]
     Active Substance: ATORVASTATIN CALCIUM
     Dosage: 10 MG, UNK
     Route: 048
     Dates: start: 1995, end: 1997

REACTIONS (5)
  - Dysgeusia [Recovered/Resolved]
  - Oral papilloma [Recovered/Resolved]
  - Chromaturia [Unknown]
  - Blood blister [Recovered/Resolved]
  - Hypertension [Unknown]

NARRATIVE: CASE EVENT DATE: 20150611
